FAERS Safety Report 9400326 (Version 1)
Quarter: 2013Q3

REPORT INFORMATION
  Report Type: Spontaneous
  Country: GB (occurrence: GB)
  Receive Date: 20130715
  Receipt Date: 20130715
  Transmission Date: 20140515
  Serious: Yes (Hospitalization)
  Sender: FDA-Public Use
  Company Number: PHHY2013GB072649

PATIENT
  Age: 82 Year
  Sex: Female

DRUGS (3)
  1. ALENDRONIC ACID [Suspect]
     Indication: OSTEOPOROSIS
     Dosage: 70 MG WEEKLY
     Route: 048
  2. HYDROXYCARBAMIDE [Concomitant]
     Dosage: 500 MG, QW3, 1 G FOR THE REMAINING 4 DAYS/WEEK
  3. ASPIRIN [Concomitant]
     Dosage: 75 MG

REACTIONS (6)
  - Osteonecrosis of jaw [Recovered/Resolved]
  - Paraesthesia [Recovered/Resolved]
  - Pain in jaw [Recovered/Resolved]
  - Mastication disorder [Recovered/Resolved]
  - Odynophagia [Recovered/Resolved]
  - Osteomyelitis chronic [Unknown]
